FAERS Safety Report 25280326 (Version 1)
Quarter: 2025Q2

REPORT INFORMATION
  Report Type: Report from Study
  Country: US (occurrence: US)
  Receive Date: 20250507
  Receipt Date: 20250507
  Transmission Date: 20250717
  Serious: Yes (Other)
  Sender: ABBVIE
  Company Number: US-ABBVIE-6269655

PATIENT
  Age: 58 Year
  Sex: Female

DRUGS (1)
  1. IMBRUVICA [Suspect]
     Active Substance: IBRUTINIB
     Indication: Vulval cancer
     Route: 048
     Dates: start: 20250114, end: 20250505

REACTIONS (1)
  - Vulval cancer [Unknown]

NARRATIVE: CASE EVENT DATE: 20250101
